FAERS Safety Report 8203306-3 (Version None)
Quarter: 2012Q1

REPORT INFORMATION
  Report Type: 
  Country: None (occurrence: None)
  Receive Date: 20120312
  Receipt Date: 20120307
  Transmission Date: 20120608
  Serious: Yes (Life-Threatening, Other)
  Sender: FDA-Public Use
  Company Number: US-ASTRAZENECA-2012SE15696

PATIENT
  Age: 57 Year
  Sex: Male
  Weight: 93.9 kg

DRUGS (15)
  1. PROZAC [Concomitant]
     Indication: BIPOLAR DISORDER
     Route: 048
  2. GABAPENTIN [Concomitant]
     Indication: BIPOLAR DISORDER
     Route: 048
  3. LITHIUM CARBONATE [Concomitant]
     Indication: BIPOLAR DISORDER
     Route: 048
  4. SEROQUEL [Suspect]
     Indication: BIPOLAR DISORDER
     Route: 048
     Dates: end: 20000101
  5. SEROQUEL [Suspect]
     Route: 048
     Dates: start: 20120101
  6. XANTAC [Concomitant]
     Indication: PROPHYLAXIS AGAINST GASTROINTESTINAL ULCER
     Dosage: 8-9 PILLS DAILY
     Route: 048
  7. AMLODIPINE [Concomitant]
     Indication: BLOOD PRESSURE ABNORMAL
     Route: 048
  8. CARBAMAZEPINE [Concomitant]
     Indication: BIPOLAR DISORDER
     Route: 048
  9. TRAZODONE HCL [Concomitant]
     Indication: BIPOLAR DISORDER
     Route: 048
  10. LAMICTAL [Concomitant]
     Indication: BIPOLAR DISORDER
     Route: 048
  11. SIMVASTATIN [Concomitant]
     Indication: BLOOD CHOLESTEROL ABNORMAL
     Route: 048
  12. OXYCODONE HCL [Concomitant]
     Indication: INTERVERTEBRAL DISC PROTRUSION
     Route: 048
  13. CYCLOBENZAPRINE HCL [Concomitant]
     Indication: MUSCLE SPASMS
     Route: 048
  14. TEGRETOL [Concomitant]
  15. INTERFERON [Concomitant]

REACTIONS (13)
  - MANIA [None]
  - INSOMNIA [None]
  - PERIARTHRITIS [None]
  - FALL [None]
  - INFLUENZA [None]
  - DRUG EFFECT DECREASED [None]
  - THYROTOXIC CRISIS [None]
  - SCHIZOPHRENIA [None]
  - JOINT INJURY [None]
  - ASTHENIA [None]
  - PNEUMONIA [None]
  - NEUROPATHY PERIPHERAL [None]
  - MUSCLE SPASMS [None]
